FAERS Safety Report 15851669 (Version 2)
Quarter: 2019Q1

REPORT INFORMATION
  Report Type: Report from Study
  Country: IT (occurrence: IT)
  Receive Date: 20190122
  Receipt Date: 20190220
  Transmission Date: 20190417
  Serious: Yes (Hospitalization)
  Sender: FDA-Public Use
  Company Number: IT-ACCORD-102973

PATIENT
  Age: 74 Year
  Sex: Female

DRUGS (3)
  1. GLIMEPIRIDE. [Suspect]
     Active Substance: GLIMEPIRIDE
     Indication: DIABETES MELLITUS
  2. PIPERACILLIN SODIUM/TAZOBACTAM SODIUM [Concomitant]
     Indication: ANTIBIOTIC THERAPY
     Dates: end: 20180321
  3. LANTUS [Suspect]
     Active Substance: INSULIN GLARGINE
     Indication: DIABETES MELLITUS

REACTIONS (2)
  - Hypoglycaemia [Not Recovered/Not Resolved]
  - Lactic acidosis [Not Recovered/Not Resolved]

NARRATIVE: CASE EVENT DATE: 20180321
